FAERS Safety Report 8139228-6 (Version None)
Quarter: 2012Q1

REPORT INFORMATION
  Report Type: 
  Country: None (occurrence: None)
  Receive Date: 20120215
  Receipt Date: 20120209
  Transmission Date: 20120608
  Serious: Yes (Other)
  Sender: FDA-Public Use
  Company Number: GR-PFIZER INC-2012035312

PATIENT
  Age: 61 Year
  Sex: Male

DRUGS (3)
  1. DAPTOMYCIN [Suspect]
     Indication: FUSARIUM INFECTION
  2. MEROPENEM [Suspect]
     Indication: FUSARIUM INFECTION
  3. VORICONAZOLE [Suspect]
     Indication: FUSARIUM INFECTION

REACTIONS (3)
  - OSTEOMYELITIS [None]
  - INFECTION [None]
  - INFLAMMATION [None]
